FAERS Safety Report 8053380-2 (Version None)
Quarter: 2012Q1

REPORT INFORMATION
  Report Type: 
  Country: None (occurrence: None)
  Receive Date: 20120118
  Receipt Date: 20120117
  Transmission Date: 20120608
  Serious: Yes (Hospitalization)
  Sender: FDA-Public Use
  Company Number: US-GLAXOSMITHKLINE-A0846667A

PATIENT
  Age: 44 Year
  Sex: Male
  Weight: 135.5 kg

DRUGS (9)
  1. TOPROL-XL [Concomitant]
  2. ALTACE [Concomitant]
  3. GLYNASE [Concomitant]
  4. NEURONTIN [Concomitant]
  5. TRICOR [Concomitant]
  6. AMITRIPTYLINE HCL [Concomitant]
  7. GLUCOPHAGE [Concomitant]
  8. GLYBURIDE [Concomitant]
  9. AVANDIA [Suspect]
     Indication: TYPE 2 DIABETES MELLITUS
     Dosage: 4MG TWICE PER DAY
     Route: 048
     Dates: start: 20030101, end: 20070501

REACTIONS (3)
  - INTRACARDIAC THROMBUS [None]
  - MYOCARDIAL INFARCTION [None]
  - LIBIDO DECREASED [None]
